FAERS Safety Report 20040699 (Version 1)
Quarter: 2021Q4

REPORT INFORMATION
  Report Type: Spontaneous
  Country: US (occurrence: None)
  Receive Date: 20211105
  Receipt Date: 20211105
  Transmission Date: 20220304
  Serious: No
  Sender: FDA-Public Use
  Company Number: None

PATIENT
  Age: 83 Year
  Sex: Male
  Weight: 115 kg

DRUGS (2)
  1. ERBITUX [Suspect]
     Active Substance: CETUXIMAB
     Dates: end: 20211019
  2. TAXOTERE [Suspect]
     Active Substance: DOCETAXEL
     Dates: end: 20211026

REACTIONS (4)
  - Mouth swelling [None]
  - Lip swelling [None]
  - Dysphagia [None]
  - Therapeutic product effect decreased [None]

NARRATIVE: CASE EVENT DATE: 20211026
